FAERS Safety Report 4475178-4 (Version None)
Quarter: 2004Q4

REPORT INFORMATION
  Report Type: 
  Country: None (occurrence: None)
  Receive Date: 20041015
  Receipt Date: 20041007
  Transmission Date: 20050328
  Serious: Yes (Other)
  Sender: FDA-Public Use
  Company Number: AU-BRISTOL-MYERS SQUIBB COMPANY-12727327

PATIENT
  Age: 7 Decade
  Sex: Female

DRUGS (3)
  1. KENALOG IN ORABASE [Suspect]
  2. AVAPRO-HCT [Concomitant]
  3. ACTONEL [Concomitant]

REACTIONS (2)
  - DYSPNOEA [None]
  - THROAT TIGHTNESS [None]
